FAERS Safety Report 11350406 (Version 3)
Quarter: 2015Q4

REPORT INFORMATION
  Report Type: Spontaneous
  Country: US (occurrence: US)
  Receive Date: 20150807
  Receipt Date: 20151110
  Transmission Date: 20160304
  Serious: Yes (Death, Hospitalization)
  Sender: FDA-Public Use
  Company Number: US-ROCHE-ITM201504IM013672

PATIENT
  Age: 66 Year
  Sex: Male

DRUGS (8)
  1. BACLOFEN. [Concomitant]
     Active Substance: BACLOFEN
  2. TESSALON [Concomitant]
     Active Substance: BENZONATATE
  3. CEFAZOLIN [Concomitant]
     Active Substance: CEFAZOLIN
  4. AZITHROMYCIN [Concomitant]
     Active Substance: AZITHROMYCIN ANHYDROUS
     Dosage: (DAY 4 OF 7)
     Route: 065
  5. COUMADINE [Concomitant]
     Active Substance: WARFARIN SODIUM
     Route: 065
  6. ESBRIET [Suspect]
     Active Substance: PIRFENIDONE
     Indication: IDIOPATHIC PULMONARY FIBROSIS
     Dosage: 3 CAPSULES THREE TIMES A DAY
     Route: 048
     Dates: start: 20150213, end: 20150803
  7. LASIX [Concomitant]
     Active Substance: FUROSEMIDE
     Dosage: LASIX 40
     Route: 042
  8. PREDNISONE. [Concomitant]
     Active Substance: PREDNISONE
     Route: 065

REACTIONS (3)
  - Nasopharyngitis [Unknown]
  - Pneumonia staphylococcal [Fatal]
  - Pulmonary embolism [Fatal]

NARRATIVE: CASE EVENT DATE: 20150803
